FAERS Safety Report 7651341-6 (Version None)
Quarter: 2011Q3

REPORT INFORMATION
  Report Type: 
  Country: None (occurrence: None)
  Receive Date: 20110802
  Receipt Date: 20110719
  Transmission Date: 20111222
  Serious: Yes (Hospitalization, Other)
  Sender: FDA-Public Use
  Company Number: PHHY2011JP61708

PATIENT
  Age: 48 Year
  Sex: Male

DRUGS (8)
  1. MYCOPHENOLATE MOFETIL [Concomitant]
     Dosage: UNK
  2. METHYLPREDNISOLONE [Concomitant]
     Dosage: UNK
  3. CYCLOSPORINE [Suspect]
     Dosage: UNK
     Route: 048
  4. CYCLOSPORINE [Suspect]
     Indication: RENAL TRANSPLANT
     Dosage: UNK
     Route: 048
  5. BASILIXIMAB [Concomitant]
     Dosage: UNK
  6. STEROIDS NOS [Concomitant]
     Dosage: UNK
  7. NAFAMOSTAT MESILATE [Concomitant]
     Dosage: UNK
  8. ASPIRIN [Concomitant]
     Dosage: UNK

REACTIONS (9)
  - CHEST PAIN [None]
  - KIDNEY TRANSPLANT REJECTION [None]
  - ANGINA PECTORIS [None]
  - MYOCARDIAL ISCHAEMIA [None]
  - ARTERIAL STENOSIS [None]
  - VASODILATATION [None]
  - NEPHROPATHY TOXIC [None]
  - CORONARY ARTERY STENOSIS [None]
  - RENAL TUBULAR NECROSIS [None]
